FAERS Safety Report 8875446 (Version 1)
Quarter: 2012Q4

REPORT INFORMATION
  Report Type: 
  Country: US (occurrence: US)
  Receive Date: 20121030
  Receipt Date: 20121030
  Transmission Date: 20130627
  Serious: Yes (Hospitalization, Other)
  Sender: FDA-Public Use
  Company Number: US-ROCHE-1082718

PATIENT
  Age: 60 Year
  Sex: Female

DRUGS (4)
  1. PEGASYS [Suspect]
     Indication: HEPATITIS C
     Route: 058
     Dates: start: 20120520
  2. RIBAVIRIN [Suspect]
     Indication: HEPATITIS C
     Dosage: in divided doses
     Route: 048
     Dates: start: 20120520
  3. RIBAVIRIN [Suspect]
     Dosage: in divided doses
     Route: 048
  4. TELAPREVIR [Suspect]
     Indication: HEPATITIS C
     Route: 065
     Dates: start: 20120520

REACTIONS (8)
  - Dehydration [Unknown]
  - Anaemia [Unknown]
  - White blood cell count decreased [Unknown]
  - Pruritus [Unknown]
  - Skin disorder [Unknown]
  - Urticaria [Unknown]
  - Viral load increased [Unknown]
  - White blood cell count decreased [Unknown]
